FAERS Safety Report 12588184 (Version 1)
Quarter: 2016Q3

REPORT INFORMATION
  Report Type: Spontaneous
  Country: BR (occurrence: BR)
  Receive Date: 20160725
  Receipt Date: 20160725
  Transmission Date: 20161109
  Serious: Yes (Hospitalization)
  Sender: FDA-Public Use
  Company Number: PHHY2016BR100898

PATIENT
  Sex: Female

DRUGS (1)
  1. EXELON PATCH [Suspect]
     Active Substance: RIVASTIGMINE
     Indication: PRODUCT USED FOR UNKNOWN INDICATION
     Dosage: 4.6 MG (9 MG/5 CM2 PATCH), QD
     Route: 062

REACTIONS (5)
  - Dysphagia [Unknown]
  - Disorientation [Unknown]
  - Speech disorder [Unknown]
  - Vomiting [Unknown]
  - Diarrhoea [Unknown]
